FAERS Safety Report 21459247 (Version 1)
Quarter: 2022Q4

REPORT INFORMATION
  Report Type: Spontaneous
  Country: US (occurrence: US)
  Receive Date: 20221014
  Receipt Date: 20221014
  Transmission Date: 20230112
  Serious: Yes (Death, Life-Threatening, Other)
  Sender: FDA-Public Use
  Company Number: US-ELI_LILLY_AND_COMPANY-US202210005987

PATIENT
  Age: 66 Year
  Sex: Female

DRUGS (4)
  1. PEMETREXED [Suspect]
     Active Substance: PEMETREXED
     Indication: Mesothelioma malignant
     Dosage: UNK, CYCLICAL
     Route: 065
  2. CISPLATIN [Suspect]
     Active Substance: CISPLATIN
     Indication: Mesothelioma malignant
     Dosage: UNK, CYCLICAL
     Route: 065
  3. IPILIMUMAB [Suspect]
     Active Substance: IPILIMUMAB
     Indication: Mesothelioma malignant
     Dosage: UNK, UNKNOWN
     Route: 065
  4. NIVOLUMAB [Suspect]
     Active Substance: NIVOLUMAB
     Indication: Mesothelioma malignant
     Dosage: UNK, UNKNOWN
     Route: 065

REACTIONS (9)
  - Death [Fatal]
  - Cardiogenic shock [Unknown]
  - Cardiac arrest [Unknown]
  - Congestive cardiomyopathy [Unknown]
  - Acute respiratory failure [Unknown]
  - Mental status changes [Unknown]
  - Coronary artery disease [Unknown]
  - Renal impairment [Unknown]
  - Tachyarrhythmia [Unknown]
